FAERS Safety Report 23394451 (Version 4)
Quarter: 2024Q3

REPORT INFORMATION
  Report Type: Report from Study
  Country: US (occurrence: US)
  Receive Date: 20240111
  Receipt Date: 20240811
  Transmission Date: 20241016
  Serious: Yes (Hospitalization)
  Sender: ABBVIE
  Company Number: US-ABBVIE-5581326

PATIENT
  Age: 47 Year
  Sex: Female

DRUGS (1)
  1. SKYRIZI [Suspect]
     Active Substance: RISANKIZUMAB-RZAA
     Indication: Psoriasis
     Route: 058
     Dates: start: 20240104

REACTIONS (15)
  - Pyrexia [Unknown]
  - Chronic kidney disease [Unknown]
  - Cellulitis [Unknown]
  - Psoriatic arthropathy [Unknown]
  - Weight decreased [Unknown]
  - Nodule [Unknown]
  - Poor quality sleep [Unknown]
  - Blood pressure decreased [Unknown]
  - Palpitations [Unknown]
  - Skin burning sensation [Unknown]
  - Arthralgia [Unknown]
  - Pain in extremity [Unknown]
  - Tendon rupture [Unknown]
  - Gait inability [Unknown]
  - Scar [Recovering/Resolving]

NARRATIVE: CASE EVENT DATE: 20240101
